FAERS Safety Report 24187539 (Version 1)
Quarter: 2024Q3

REPORT INFORMATION
  Report Type: Spontaneous
  Country: US (occurrence: US)
  Receive Date: 20240808
  Receipt Date: 20240808
  Transmission Date: 20241017
  Serious: No
  Sender: ABBVIE
  Company Number: US-ABBVIE-5867581

PATIENT

DRUGS (2)
  1. SKYRIZI [Suspect]
     Active Substance: RISANKIZUMAB-RZAA
     Indication: Psoriasis
     Route: 058
     Dates: start: 202307
  2. SKYRIZI [Suspect]
     Active Substance: RISANKIZUMAB-RZAA
     Indication: Psoriatic arthropathy

REACTIONS (7)
  - Joint stiffness [Unknown]
  - Joint swelling [Unknown]
  - Arthralgia [Unknown]
  - Joint noise [Unknown]
  - Erythema [Unknown]
  - Arthralgia [Unknown]
  - Therapeutic product effect incomplete [Unknown]
